FAERS Safety Report 7255641-3 (Version None)
Quarter: 2011Q1

REPORT INFORMATION
  Report Type: 
  Country: None (occurrence: None)
  Receive Date: 20110129
  Receipt Date: 20100621
  Transmission Date: 20110831
  Serious: No
  Sender: FDA-Public Use
  Company Number: PR-ABBOTT-10P-131-0651461-00

PATIENT
  Sex: Female
  Weight: 92.616 kg

DRUGS (10)
  1. ULTRACET [Concomitant]
     Indication: PAIN
     Dosage: 112.5/97 5 MG
     Route: 048
  2. ANSAID [Concomitant]
     Indication: PAIN
     Route: 048
  3. RESTORIL [Concomitant]
     Indication: DEPRESSION
     Route: 048
  4. SYNTHROID [Concomitant]
     Route: 048
  5. SYNTHROID [Concomitant]
     Indication: HYPOTHYROIDISM
     Route: 048
  6. ZOLOFT [Concomitant]
     Indication: DEPRESSION
     Route: 048
  7. KLONOPIN [Concomitant]
     Indication: DEPRESSION
     Route: 048
  8. HUMIRA [Suspect]
     Indication: RHEUMATOID ARTHRITIS
     Dosage: 1 PEN
     Route: 058
  9. PROTONIX [Concomitant]
     Indication: GASTRITIS
     Route: 048
  10. METHOTREXATE [Concomitant]
     Indication: RHEUMATOID ARTHRITIS
     Route: 030

REACTIONS (3)
  - INFLAMMATION [None]
  - INJECTION SITE ERYTHEMA [None]
  - INJECTION SITE REACTION [None]
